FAERS Safety Report 17710908 (Version 1)
Quarter: 2020Q2

REPORT INFORMATION
  Report Type: Spontaneous
  Country: US (occurrence: US)
  Receive Date: 20200427
  Receipt Date: 20200427
  Transmission Date: 20200714
  Serious: No
  Sender: FDA-Public Use
  Company Number: US-009507513-2004USA007766

PATIENT
  Age: 75 Year
  Sex: Female

DRUGS (2)
  1. SULFAMETHOXAZOLE (+) TRIMETHOPRIM [Concomitant]
     Active Substance: SULFAMETHOXAZOLE\TRIMETHOPRIM
     Indication: NOCARDIOSIS
     Dosage: 15 MILLIGRAM/KILOGRAM OF THE TRIMETHOPRIM COMPONENT DIVIDED IN 2 DOSES
  2. PRIMAXIN IV [Suspect]
     Active Substance: CILASTATIN SODIUM\IMIPENEM
     Indication: NOCARDIOSIS
     Dosage: 500 MILLIGRAM, Q6H
     Route: 042

REACTIONS (1)
  - Off label use [Unknown]
